FAERS Safety Report 9917774 (Version 1)
Quarter: 2014Q1

REPORT INFORMATION
  Report Type: Spontaneous
  Country: US (occurrence: US)
  Receive Date: 20140221
  Receipt Date: 20140221
  Transmission Date: 20141002
  Serious: Yes (Other)
  Sender: FDA-Public Use
  Company Number: US-PFIZER INC-2014047533

PATIENT
  Age: 64 Year
  Sex: Female

DRUGS (1)
  1. XELJANZ [Suspect]
     Dosage: 5 MG 1 TABLET, 2X/DAY
     Route: 048
     Dates: start: 201301

REACTIONS (3)
  - Lower respiratory tract infection [Unknown]
  - Pyrexia [Unknown]
  - Rhinorrhoea [Unknown]
